FAERS Safety Report 20885249 (Version 1)
Quarter: 2022Q2

REPORT INFORMATION
  Report Type: Other
  Country: CO (occurrence: None)
  Receive Date: 20220527
  Receipt Date: 20220527
  Transmission Date: 20220721
  Serious: Yes (Hospitalization)
  Sender: FDA-Public Use
  Company Number: CO-ROCHE-3104393

PATIENT
  Age: 70 Year
  Sex: Female

DRUGS (6)
  1. TOCILIZUMAB [Suspect]
     Active Substance: TOCILIZUMAB
     Indication: COVID-19
     Route: 065
  2. NOREPINEPHRINE [Concomitant]
     Active Substance: NOREPINEPHRINE
     Indication: Septic shock
  3. VANCOMYCIN [Concomitant]
     Active Substance: VANCOMYCIN
  4. MEROPENEM [Concomitant]
     Active Substance: MEROPENEM
  5. VASOPRESSIN [Concomitant]
     Active Substance: VASOPRESSIN
  6. AMPICILLIN SODIUM\SULBACTAM SODIUM [Concomitant]
     Active Substance: AMPICILLIN SODIUM\SULBACTAM SODIUM

REACTIONS (3)
  - COVID-19 [Unknown]
  - Flavobacterium infection [Unknown]
  - Off label use [Unknown]
